FAERS Safety Report 7108328-1 (Version None)
Quarter: 2010Q4

REPORT INFORMATION
  Report Type: 
  Country: None (occurrence: None)
  Receive Date: 20101117
  Receipt Date: 20101104
  Transmission Date: 20110411
  Serious: Yes (Hospitalization)
  Sender: FDA-Public Use
  Company Number: PHHY2010IT74684

PATIENT
  Sex: Female

DRUGS (3)
  1. EXELON [Suspect]
     Indication: DEMENTIA ALZHEIMER'S TYPE
     Dosage: 4.5 MG
     Route: 048
     Dates: start: 20101024, end: 20101024
  2. DELORAZEPAM [Concomitant]
     Indication: PSYCHOMOTOR HYPERACTIVITY
     Dosage: 10 DROPS PER DAY
     Route: 048
     Dates: start: 20100901, end: 20101023
  3. SEROQUEL [Concomitant]
     Indication: DEPRESSION
     Dosage: 150 MG PER DAY
     Route: 048
     Dates: start: 20100901, end: 20101023

REACTIONS (2)
  - SOPOR [None]
  - VOMITING [None]
